FAERS Safety Report 6489919-8 (Version None)
Quarter: 2009Q4

REPORT INFORMATION
  Report Type: 
  Country: None (occurrence: None)
  Receive Date: 20091211
  Receipt Date: 20091204
  Transmission Date: 20100525
  Serious: Yes (Hospitalization)
  Sender: FDA-Public Use
  Company Number: IT-JNJFOC-20091000968

PATIENT
  Sex: Female

DRUGS (3)
  1. RISPERDAL [Suspect]
     Route: 065
  2. RISPERDAL [Suspect]
     Route: 065
  3. RISPERDAL [Suspect]
     Indication: DELIRIUM
     Route: 065

REACTIONS (5)
  - ANXIETY [None]
  - HYPOTENSION [None]
  - INTENTIONAL OVERDOSE [None]
  - OFF LABEL USE [None]
  - SELF INJURIOUS BEHAVIOUR [None]
